FAERS Safety Report 16500953 (Version 1)
Quarter: 2019Q3

REPORT INFORMATION
  Report Type: Spontaneous
  Country: US (occurrence: US)
  Receive Date: 20190628
  Receipt Date: 20190628
  Transmission Date: 20191004
  Serious: Yes (Hospitalization)
  Sender: FDA-Public Use
  Company Number: None

PATIENT
  Sex: Female

DRUGS (3)
  1. MULTI VITE, TYLENOL [Concomitant]
  2. LEXAPRO, VIT B6, VIT B12, IRON, VIT D3 [Concomitant]
  3. STELARA [Suspect]
     Active Substance: USTEKINUMAB
     Indication: CROHN^S DISEASE
     Dosage: ?          OTHER FREQUENCY:EVERY 30 DAYS;?
     Route: 058
     Dates: start: 20180802

REACTIONS (1)
  - Intestinal obstruction [None]
